FAERS Safety Report 8567750-7 (Version None)
Quarter: 2012Q3

REPORT INFORMATION
  Report Type: 
  Country: None (occurrence: None)
  Receive Date: 20120803
  Receipt Date: 20120731
  Transmission Date: 20120928
  Serious: No
  Sender: FDA-Public Use
  Company Number: US-TEVA-351617USA

PATIENT
  Sex: Female

DRUGS (5)
  1. HYDROCHLOROTHIAZIDE [Concomitant]
     Indication: HYPERTENSION
     Route: 048
  2. LISINOPRIL [Concomitant]
     Indication: HYPERTENSION
     Route: 048
  3. FLUTICASONE PROPIONATE [Concomitant]
     Indication: DYSPNOEA
     Route: 055
     Dates: start: 20100101
  4. PROAIR HFA [Suspect]
     Indication: DYSPNOEA
     Dosage: 720 MICROGRAM;
     Route: 055
  5. HYDROXY [Concomitant]
     Indication: HYPERSENSITIVITY
     Route: 048

REACTIONS (2)
  - RHINITIS [None]
  - PHARYNGITIS [None]
